FAERS Safety Report 25187381 (Version 1)
Quarter: 2025Q2

REPORT INFORMATION
  Report Type: Spontaneous
  Country: US (occurrence: US)
  Receive Date: 20250411
  Receipt Date: 20250411
  Transmission Date: 20250717
  Serious: Yes (Other)
  Sender: SANOFI AVENTIS
  Company Number: US-SANOFI-02473446

PATIENT
  Age: 53 Year
  Sex: Female

DRUGS (3)
  1. FABRAZYME [Suspect]
     Active Substance: AGALSIDASE BETA
     Indication: Fabry^s disease
  2. FABRAZYME [Suspect]
     Active Substance: AGALSIDASE BETA
  3. FABRAZYME [Suspect]
     Active Substance: AGALSIDASE BETA
     Dosage: 78 MG, QOW
     Dates: start: 20250325

REACTIONS (11)
  - Atrial fibrillation [Unknown]
  - Cardiac failure [Unknown]
  - Sinus arrest [Unknown]
  - Cardiac arrest [Unknown]
  - Atrial flutter [Unknown]
  - Chest pain [Unknown]
  - Palpitations [Unknown]
  - Vision blurred [Unknown]
  - Arthralgia [Unknown]
  - Multi-organ disorder [Unknown]
  - Renal transplant [Unknown]

NARRATIVE: CASE EVENT DATE: 20250326
